FAERS Safety Report 13297658 (Version 1)
Quarter: 2017Q1

REPORT INFORMATION
  Report Type: Spontaneous
  Country: US (occurrence: US)
  Receive Date: 20170305
  Receipt Date: 20170305
  Transmission Date: 20170428
  Serious: Yes (Other)
  Sender: FDA-Public Use
  Company Number: None

PATIENT
  Age: 63 Year
  Sex: Female
  Weight: 66.15 kg

DRUGS (4)
  1. ZETIA [Concomitant]
     Active Substance: EZETIMIBE
  2. TOPROL XL [Concomitant]
     Active Substance: METOPROLOL SUCCINATE
  3. DULOXETINE DR [Suspect]
     Active Substance: DULOXETINE
     Indication: FIBROMYALGIA
     Dosage: ?          QUANTITY:1 CAPSULE(S);?
     Route: 048
  4. WOMEN^S MULTIVITAMIN [Concomitant]

REACTIONS (12)
  - Dizziness [None]
  - Vertigo [None]
  - Syncope [None]
  - Activities of daily living impaired [None]
  - Dysstasia [None]
  - Gait disturbance [None]
  - Drug withdrawal syndrome [None]
  - Seizure [None]
  - Tremor [None]
  - Visual impairment [None]
  - Paraesthesia [None]
  - Discomfort [None]

NARRATIVE: CASE EVENT DATE: 20161109
